FAERS Safety Report 11929120 (Version 1)
Quarter: 2016Q1

REPORT INFORMATION
  Report Type: Spontaneous
  Country: CN (occurrence: CN)
  Receive Date: 20160120
  Receipt Date: 20160120
  Transmission Date: 20160526
  Serious: Yes (Hospitalization)
  Sender: FDA-Public Use
  Company Number: CN-PFIZER INC-2016024931

PATIENT
  Age: 85 Year
  Sex: Female
  Weight: 66 kg

DRUGS (1)
  1. SOLU-MEDROL [Suspect]
     Active Substance: METHYLPREDNISOLONE SODIUM SUCCINATE
     Indication: INFECTION
     Dosage: 40 MG, 1X/DAY
     Route: 041
     Dates: start: 20150613, end: 20150613

REACTIONS (3)
  - Seizure [Recovering/Resolving]
  - Epilepsy [Recovering/Resolving]
  - Delirium [Recovering/Resolving]

NARRATIVE: CASE EVENT DATE: 20150613
